FAERS Safety Report 20140948 (Version 1)
Quarter: 2021Q4

REPORT INFORMATION
  Report Type: Spontaneous
  Country: US (occurrence: US)
  Receive Date: 20211202
  Receipt Date: 20211202
  Transmission Date: 20220303
  Serious: Yes (Hospitalization, Other)
  Sender: FDA-Public Use
  Company Number: US-INCYTE CORPORATION-2021IN010921

PATIENT

DRUGS (2)
  1. JAKAFI [Suspect]
     Active Substance: RUXOLITINIB
     Indication: Myelofibrosis
     Dosage: 10MG DAILY, 20 MG DAILY
     Route: 048
     Dates: start: 201904
  2. JAKAFI [Suspect]
     Active Substance: RUXOLITINIB
     Dosage: 20 MG NIGHTLY, 10 MG TWICE DAILY
     Route: 048
     Dates: start: 20190416

REACTIONS (6)
  - Pneumothorax [Unknown]
  - Pulmonary oedema [Unknown]
  - White blood cell count decreased [Unknown]
  - Drug withdrawal syndrome [Unknown]
  - Total lung capacity abnormal [Unknown]
  - Product availability issue [Unknown]
